FAERS Safety Report 7383770-2 (Version None)
Quarter: 2011Q1

REPORT INFORMATION
  Report Type: 
  Country: None (occurrence: None)
  Receive Date: 20110330
  Receipt Date: 20081001
  Transmission Date: 20110831
  Serious: Yes (Death, Hospitalization)
  Sender: FDA-Public Use
  Company Number: US-BAYER-2011-008406

PATIENT
  Sex: Female
  Weight: 72.562 kg

DRUGS (15)
  1. NITROGLYCERIN [Concomitant]
     Dosage: TITRATE
     Route: 042
     Dates: start: 19950106, end: 19950123
  2. DOPAMINE HCL [Concomitant]
     Dosage: TITRATE RENAL
     Route: 042
     Dates: start: 19950113, end: 19950113
  3. HEPARIN SODIUM [Concomitant]
     Dosage: TITRATE
     Route: 042
     Dates: start: 19950106, end: 19950123
  4. MORPHINE [Concomitant]
     Dosage: 10 MG, UNK
     Route: 042
     Dates: start: 19950106
  5. ACETYLSALICYLIC ACID SRT [Concomitant]
     Dosage: 325 MG, UNK
     Route: 048
     Dates: start: 19950107, end: 19950112
  6. LASIX [Concomitant]
     Dosage: TITRATE
     Route: 042
     Dates: start: 19950106, end: 19950123
  7. VALIUM [Concomitant]
     Dosage: 5 MG, UNK
     Route: 048
     Dates: start: 19950107, end: 19950113
  8. CARDIZEM [Concomitant]
     Dosage: 60 MG, UNK
     Route: 048
     Dates: start: 19950105, end: 19950112
  9. INSULIN 2 [Concomitant]
     Dosage: 5 U, UNK
     Route: 058
     Dates: start: 19950106, end: 19950123
  10. GLUCOTROL [Concomitant]
     Dosage: 5 MG, UNK
     Route: 048
     Dates: start: 19950106
  11. LOPRESSOR [Concomitant]
     Dosage: 50 MG, UNK
     Route: 048
     Dates: start: 19950106
  12. ZANTAC [Concomitant]
     Dosage: 50 MG, UNK
     Route: 042
     Dates: start: 19950106, end: 19950112
  13. TRASYLOL [Suspect]
     Indication: CORONARY ARTERY BYPASS
     Dosage: UNK
     Route: 042
     Dates: start: 19950112
  14. HEPARIN SODIUM [Concomitant]
     Dosage: 5000 U, UNK
     Route: 042
     Dates: start: 19950106, end: 19950110
  15. EPOETIN NOS [Concomitant]
     Dosage: 8000 U, UNK
     Route: 042
     Dates: start: 19950107, end: 19950123

REACTIONS (7)
  - ANXIETY [None]
  - STRESS [None]
  - RENAL FAILURE [None]
  - PAIN [None]
  - EMOTIONAL DISTRESS [None]
  - INJURY [None]
  - DEATH [None]
